FAERS Safety Report 12981774 (Version 1)
Quarter: 2016Q4

REPORT INFORMATION
  Report Type: Spontaneous
  Country: US (occurrence: US)
  Receive Date: 20161128
  Receipt Date: 20161128
  Transmission Date: 20170207
  Serious: No
  Sender: FDA-Public Use
  Company Number: None

PATIENT
  Age: 63 Year
  Sex: Female

DRUGS (1)
  1. TOBRAMYCIN. [Suspect]
     Active Substance: TOBRAMYCIN
     Indication: BRONCHIECTASIS
     Dosage: 300MG TWICE A DAY EVERY OTHER INHALATION
     Route: 055
     Dates: start: 20160918, end: 20160919

REACTIONS (3)
  - Salivary hypersecretion [None]
  - Muscle spasms [None]
  - Arthralgia [None]

NARRATIVE: CASE EVENT DATE: 20161119
